FAERS Safety Report 6618090-4 (Version None)
Quarter: 2010Q1

REPORT INFORMATION
  Report Type: 
  Country: None (occurrence: None)
  Receive Date: 20100308
  Receipt Date: 20100226
  Transmission Date: 20100710
  Serious: Yes (Other)
  Sender: FDA-Public Use
  Company Number: US-PFIZER INC-2010025764

PATIENT
  Sex: Female
  Weight: 67.12 kg

DRUGS (3)
  1. MYCOBUTIN [Suspect]
     Indication: HELICOBACTER INFECTION
     Dosage: 150 MG, 2X/DAY
     Route: 048
     Dates: start: 20100225
  2. AMOXICILLIN [Concomitant]
     Dosage: UNK
  3. VIREAD [Concomitant]
     Indication: HEPATITIS B
     Dosage: UNK

REACTIONS (4)
  - BLADDER PAIN [None]
  - CHROMATURIA [None]
  - CYSTITIS [None]
  - FAECES DISCOLOURED [None]
